FAERS Safety Report 12900444 (Version 7)
Quarter: 2017Q3

REPORT INFORMATION
  Report Type: Report from Study
  Country: US (occurrence: US)
  Receive Date: 20161101
  Receipt Date: 20170807
  Transmission Date: 20171127
  Serious: Yes (Life-Threatening, Hospitalization, Disabling)
  Sender: FDA-Public Use
  Company Number: US-ACTELION-A-US2016-144378

PATIENT
  Age: 71 Year
  Sex: Female

DRUGS (20)
  1. OPSUMIT [Suspect]
     Active Substance: MACITENTAN
     Indication: PULMONARY ARTERIAL HYPERTENSION
     Dosage: 10 MG, QD
     Route: 048
     Dates: start: 20140714
  2. MECLIZINE [Concomitant]
     Active Substance: MECLIZINE HYDROCHLORIDE
  3. ZYPREXA [Concomitant]
     Active Substance: OLANZAPINE
  4. STIMATE [Concomitant]
     Active Substance: DESMOPRESSIN ACETATE
  5. VITAMIN B12 [Concomitant]
     Active Substance: CYANOCOBALAMIN
  6. CEFDINIR. [Concomitant]
     Active Substance: CEFDINIR
  7. GLUCOSAMINE [Concomitant]
     Active Substance: GLUCOSAMINE
  8. CALCIUM + VITAMIN D [Concomitant]
     Active Substance: CALCIUM\VITAMIN D
  9. LEVOTHYROXIN [Concomitant]
     Active Substance: LEVOTHYROXINE
  10. CELECOXIB. [Concomitant]
     Active Substance: CELECOXIB
  11. LIDOCAINE. [Concomitant]
     Active Substance: LIDOCAINE
  12. PROBIOTIC [Concomitant]
     Active Substance: PROBIOTICS NOS
  13. ALPRAZOLAM. [Concomitant]
     Active Substance: ALPRAZOLAM
  14. MULTIVITAMIN [Concomitant]
     Active Substance: VITAMINS
  15. GABAPENTIN. [Concomitant]
     Active Substance: GABAPENTIN
  16. POTASSIUM CHLORIDE. [Concomitant]
     Active Substance: POTASSIUM CHLORIDE
  17. CEPHALEXIN. [Concomitant]
     Active Substance: CEPHALEXIN
  18. PRILOCAINE [Concomitant]
     Active Substance: PRILOCAINE
  19. ALBUTEROL. [Concomitant]
     Active Substance: ALBUTEROL
  20. IBUPROFEN. [Concomitant]
     Active Substance: IBUPROFEN

REACTIONS (25)
  - Drug dependence [Recovering/Resolving]
  - Psychotic disorder [Not Recovered/Not Resolved]
  - Cystitis [Unknown]
  - Myalgia [Unknown]
  - Drug dose omission [Not Recovered/Not Resolved]
  - Headache [Unknown]
  - Back pain [Unknown]
  - Pain [Unknown]
  - Peripheral swelling [Unknown]
  - Aggression [Recovering/Resolving]
  - Dyspnoea [Unknown]
  - Suicidal ideation [Recovered/Resolved]
  - Pain in extremity [Unknown]
  - Flat affect [Unknown]
  - Escherichia infection [Unknown]
  - Paraesthesia [Unknown]
  - Memory impairment [Unknown]
  - Abdominal pain [Unknown]
  - Self-injurious ideation [Recovered/Resolved]
  - Tremor [Recovering/Resolving]
  - Condition aggravated [Unknown]
  - Renal impairment [Unknown]
  - Nasal congestion [Unknown]
  - Drug dose omission [Not Recovered/Not Resolved]
  - Fluid retention [Unknown]

NARRATIVE: CASE EVENT DATE: 20170212
